FAERS Safety Report 10515526 (Version 1)
Quarter: 2014Q4

REPORT INFORMATION
  Report Type: Spontaneous
  Country: US (occurrence: None)
  Receive Date: 20141009
  Receipt Date: 20141009
  Transmission Date: 20150528
  Serious: Yes (Life-Threatening)
  Sender: FDA-Public Use
  Company Number: US-TORRENT-00000811

PATIENT
  Sex: Female
  Weight: 70.3 kg

DRUGS (5)
  1. TOPIRAMATE. [Concomitant]
     Active Substance: TOPIRAMATE
  2. BAYER ASPRIN (ACETYLSALICYLIC ACID) [Concomitant]
  3. ZANTAC [Concomitant]
     Active Substance: RANITIDINE HYDROCHLORIDE
  4. LEVETIRACETAM. [Suspect]
     Active Substance: LEVETIRACETAM
     Indication: SEIZURE
     Dates: start: 201403
  5. PRILOSEC (OMEPRAZOLE) [Concomitant]
     Active Substance: OMEPRAZOLE MAGNESIUM

REACTIONS (13)
  - Chest discomfort [None]
  - Lethargy [None]
  - Memory impairment [None]
  - Decreased appetite [None]
  - Dizziness [None]
  - Loss of consciousness [None]
  - Supraventricular extrasystoles [None]
  - Fall [None]
  - Condition aggravated [None]
  - Balance disorder [None]
  - Nausea [None]
  - Impaired work ability [None]
  - Impaired driving ability [None]
